FAERS Safety Report 13810654 (Version 2)
Quarter: 2018Q1

REPORT INFORMATION
  Report Type: Spontaneous
  Country: US (occurrence: US)
  Receive Date: 20170728
  Receipt Date: 20180124
  Transmission Date: 20180508
  Serious: No
  Sender: FDA-Public Use
  Company Number: US-AMGEN-USASP2017083183

PATIENT
  Sex: Male

DRUGS (17)
  1. HYDROCODONE [Concomitant]
     Active Substance: HYDROCODONE
     Dosage: (5-325 MG)
  2. IBUPROFEN. [Concomitant]
     Active Substance: IBUPROFEN
     Dosage: 800 MG, UNK
  3. ISOSORBIDE MN [Concomitant]
     Active Substance: ISOSORBIDE MONONITRATE
     Dosage: 30 MG, BID
  4. SUMATRIPTAN. [Concomitant]
     Active Substance: SUMATRIPTAN
     Dosage: 50 MG, UNK
  5. ESCITALOPRAM [Concomitant]
     Active Substance: ESCITALOPRAM OXALATE
     Dosage: 10 MG, UNK
  6. LANTUS [Concomitant]
     Active Substance: INSULIN GLARGINE
     Dosage: 100 UNIT, UNK
  7. CLOPIDOGREL [Concomitant]
     Active Substance: CLOPIDOGREL BISULFATE
     Dosage: 75 MG, UNK
  8. DIAZEPAM. [Concomitant]
     Active Substance: DIAZEPAM
     Dosage: 5 MG, UNK
  9. LIDOCAINE. [Concomitant]
     Active Substance: LIDOCAINE
     Dosage: 2.5 UNK, UNK
  10. DULOXETINE HCL [Concomitant]
     Active Substance: DULOXETINE HYDROCHLORIDE
     Dosage: 20 MG, UNK
  11. SULFAMETHOXAZOL [Concomitant]
     Active Substance: SULFAMETHOXAZOLE
     Dosage: (800-160 M)
  12. REPATHA [Suspect]
     Active Substance: EVOLOCUMAB
     Indication: PRODUCT USED FOR UNKNOWN INDICATION
     Dosage: 140 MG/ML, Q2WK
     Route: 058
  13. METOPROLOL SUCCINATE. [Concomitant]
     Active Substance: METOPROLOL SUCCINATE
     Dosage: 25 MG, BID
  14. NOVOLOG [Concomitant]
     Active Substance: INSULIN ASPART
     Dosage: 10 UNIT, UNK
  15. OXYCODONE-ACET [Concomitant]
     Active Substance: ACETAMINOPHEN\OXYCODONE HYDROCHLORIDE
     Dosage: (10-325 MG)
  16. PANTOPRAZOLE [Concomitant]
     Active Substance: PANTOPRAZOLE
     Dosage: 20 MG, UNK
  17. POTASSIUM [Concomitant]
     Active Substance: POTASSIUM
     Dosage: 20 MEQ, UNK

REACTIONS (1)
  - Antibiotic therapy [Not Recovered/Not Resolved]
